FAERS Safety Report 7521609-2 (Version None)
Quarter: 2011Q2

REPORT INFORMATION
  Report Type: 
  Country: None (occurrence: None)
  Receive Date: 20110603
  Receipt Date: 20110525
  Transmission Date: 20111010
  Serious: Yes (Disabling, Other)
  Sender: FDA-Public Use
  Company Number: US-BRACCO-002051

PATIENT
  Sex: Male
  Weight: 115.65 kg

DRUGS (21)
  1. CYCLOBENZAPRINE [Concomitant]
  2. AMARYL [Concomitant]
  3. PLAVIX [Concomitant]
  4. MAGNEVIST [Suspect]
     Indication: NUCLEAR MAGNETIC RESONANCE IMAGING ABDOMINAL
     Dates: start: 20060510, end: 20060510
  5. CELEBREX [Concomitant]
  6. AGGRENOX [Concomitant]
  7. ADVAIR DISKUS 100/50 [Concomitant]
  8. MAGNEVIST [Suspect]
     Indication: NUCLEAR MAGNETIC RESONANCE IMAGING
     Dates: start: 20040420, end: 20040420
  9. CONTRAST MEDIA [Suspect]
     Indication: NUCLEAR MAGNETIC RESONANCE IMAGING BRAIN
     Dates: start: 20031105, end: 20031105
  10. PROZAC [Concomitant]
  11. OMNISCAN [Suspect]
     Indication: NUCLEAR MAGNETIC RESONANCE IMAGING BRAIN
     Dates: start: 20031111, end: 20031111
  12. ZOCOR [Concomitant]
  13. ALPRAZOLAM [Concomitant]
  14. AVANDIA [Concomitant]
  15. AMBIEN [Concomitant]
  16. HYDROCHLOROTHIAZIDE [Concomitant]
  17. SYNTHROID [Concomitant]
  18. MULTIHANCE [Suspect]
     Indication: NUCLEAR MAGNETIC RESONANCE IMAGING
     Dates: start: 20070822, end: 20070822
  19. SINGULAIR [Concomitant]
  20. DIOVAN [Concomitant]
  21. MAGNEVIST [Suspect]
     Indication: ANGIOGRAM
     Dates: start: 20040420, end: 20040420

REACTIONS (1)
  - NEPHROGENIC SYSTEMIC FIBROSIS [None]
